FAERS Safety Report 4873391-5 (Version None)
Quarter: 2006Q1

REPORT INFORMATION
  Report Type: 
  Country: None (occurrence: None)
  Receive Date: 20060105
  Receipt Date: 20051223
  Transmission Date: 20060701
  Serious: Yes (Other)
  Sender: FDA-Public Use
  Company Number: TR-NOVOPROD-249590

PATIENT
  Age: 58 Year
  Sex: Female
  Weight: 68 kg

DRUGS (4)
  1. LEVEMIR [Suspect]
     Indication: INSULIN-REQUIRING TYPE II DIABETES MELLITUS
     Dosage: 24 IU, QD
     Route: 058
     Dates: start: 20050629, end: 20050702
  2. TELMISARTAN [Concomitant]
     Indication: HYPERTENSION
     Dosage: 80 MG, QD
     Route: 048
     Dates: start: 20020101
  3. ROSIGLITAZONE [Concomitant]
     Indication: INSULIN-REQUIRING TYPE II DIABETES MELLITUS
     Dosage: 8 MG, QD
     Route: 048
     Dates: start: 20040101
  4. METFORMIN [Concomitant]
     Indication: INSULIN-REQUIRING TYPE II DIABETES MELLITUS
     Dosage: 2550 MG, QD
     Route: 048
     Dates: start: 19970101

REACTIONS (4)
  - INJECTION SITE HAEMORRHAGE [None]
  - INJECTION SITE PRURITUS [None]
  - INJECTION SITE REACTION [None]
  - INJECTION SITE SWELLING [None]
